FAERS Safety Report 21087714 (Version 1)
Quarter: 2022Q3

REPORT INFORMATION
  Report Type: Spontaneous
  Country: US (occurrence: None)
  Receive Date: 20220714
  Receipt Date: 20220714
  Transmission Date: 20221027
  Serious: No
  Sender: FDA-Public Use
  Company Number: None

PATIENT
  Sex: Male

DRUGS (3)
  1. LENALIDOMIDE [Suspect]
     Active Substance: LENALIDOMIDE
     Indication: Plasma cell myeloma
     Dosage: FREQUENCY : DAILY;?
     Route: 048
     Dates: start: 202203
  2. DEXAMETHASONE [Concomitant]
  3. VELCADE [Concomitant]
     Active Substance: BORTEZOMIB

REACTIONS (4)
  - Dry eye [None]
  - Asthenia [None]
  - Excessive cerumen production [None]
  - Sinus congestion [None]
